FAERS Safety Report 9258641 (Version 2)
Quarter: 2014Q1

REPORT INFORMATION
  Report Type: Spontaneous
  Country: US (occurrence: None)
  Receive Date: 20121212
  Receipt Date: 20130314
  Transmission Date: 20141002
  Serious: No
  Sender: FDA-Public Use
  Company Number: 1211USA005761

PATIENT
  Age: 56 Year
  Sex: Female

DRUGS (3)
  1. VICTRELIS (BOCEPREVIR) CAPSULE [Suspect]
     Indication: HEPATITIS C
     Route: 048
     Dates: start: 20121008
  2. PEGASYS IPEGINTERFERON ALFA-2A) [Concomitant]
  3. RIBASPERE (RIBAVIRIN) [Concomitant]

REACTIONS (6)
  - Blood count abnormal [None]
  - Fatigue [None]
  - Arthralgia [None]
  - Pain in extremity [None]
  - Photopsia [None]
  - Fatigue [None]
